FAERS Safety Report 22323727 (Version 1)
Quarter: 2023Q2

REPORT INFORMATION
  Report Type: Other
  Country: CA (occurrence: CA)
  Receive Date: 20230516
  Receipt Date: 20230516
  Transmission Date: 20230722
  Serious: Yes (Other)
  Sender: FDA-Public Use
  Company Number: CA-PFIZER INC-202300188864

PATIENT
  Age: 58 Year
  Sex: Female

DRUGS (1)
  1. KETOROLAC TROMETHAMINE [Suspect]
     Active Substance: KETOROLAC TROMETHAMINE
     Indication: Osteoarthritis
     Dosage: UNK, 1 EVERY 24 HOURS
     Route: 065

REACTIONS (3)
  - Erosive oesophagitis [Unknown]
  - Gastrointestinal disorder [Unknown]
  - Obstruction gastric [Unknown]
